FAERS Safety Report 21693911 (Version 2)
Quarter: 2023Q2

REPORT INFORMATION
  Report Type: Report from Study
  Country: FR (occurrence: FR)
  Receive Date: 20221207
  Receipt Date: 20230510
  Transmission Date: 20230721
  Serious: Yes (Hospitalization)
  Sender: FDA-Public Use
  Company Number: FR-SERVIER-S22012436

PATIENT

DRUGS (13)
  1. PEGASPARGASE [Suspect]
     Active Substance: PEGASPARGASE
     Indication: Acute lymphocytic leukaemia
     Dosage: 2675 [IU], D4
     Route: 042
     Dates: start: 20220926
  2. VINCRISTINE [Suspect]
     Active Substance: VINCRISTINE
     Indication: Acute lymphocytic leukaemia
     Dosage: 1.6 MG, D1, D18
     Route: 042
     Dates: start: 20220923
  3. ADRIAMYCIN [Suspect]
     Active Substance: DOXORUBICIN HYDROCHLORIDE
     Indication: Acute lymphocytic leukaemia
     Dosage: 26.8 MG, D1, D8
     Route: 042
     Dates: start: 20220923
  4. DEXAMETHASONE [Suspect]
     Active Substance: DEXAMETHASONE
     Indication: Acute lymphocytic leukaemia
     Dosage: 6.5 MG, D1-7
     Route: 048
     Dates: start: 20220923
  5. METHOTREXATE [Suspect]
     Active Substance: METHOTREXATE
     Indication: Acute lymphocytic leukaemia
     Dosage: 12 MG, D4
     Route: 037
     Dates: start: 20220926
  6. CYTARABINE [Suspect]
     Active Substance: CYTARABINE
     Indication: Acute lymphocytic leukaemia
     Dosage: 30 MG, D4
     Route: 037
     Dates: start: 20220926
  7. HYDROCORTISONE [Suspect]
     Active Substance: HYDROCORTISONE
     Indication: Acute lymphocytic leukaemia
     Dosage: 15 MG, D4
     Route: 037
     Dates: start: 20220926
  8. ACYCLOVIR [Concomitant]
     Active Substance: ACYCLOVIR
     Indication: Product used for unknown indication
     Dosage: 800 MG, BID
     Route: 048
  9. SULFAMETHOXAZOLE\TRIMETHOPRIM [Concomitant]
     Active Substance: SULFAMETHOXAZOLE\TRIMETHOPRIM
     Indication: Product used for unknown indication
     Dosage: 600 MG, 3X A WEEK
     Route: 048
  10. CHOLECALCIFEROL [Concomitant]
     Active Substance: CHOLECALCIFEROL
     Indication: Product used for unknown indication
     Dosage: 100000 [IU] PER TRIMESTER
     Route: 048
  11. ACETAMINOPHEN [Concomitant]
     Active Substance: ACETAMINOPHEN
     Indication: Product used for unknown indication
     Dosage: 500 MG/M2, QID
     Route: 048
  12. ONDANSETRON [Concomitant]
     Active Substance: ONDANSETRON
     Indication: Product used for unknown indication
     Dosage: 8 MG, BID
     Route: 048
  13. METOPIMAZINE [Concomitant]
     Active Substance: METOPIMAZINE
     Indication: Product used for unknown indication
     Dosage: 7.5 MG (MAX 3/ DAY)
     Route: 048

REACTIONS (1)
  - Parainfluenzae virus infection [Recovered/Resolved]

NARRATIVE: CASE EVENT DATE: 20221006
